FAERS Safety Report 10471785 (Version 1)
Quarter: 2014Q3

REPORT INFORMATION
  Report Type: Spontaneous
  Country: DE (occurrence: DE)
  Receive Date: 20140924
  Receipt Date: 20140924
  Transmission Date: 20150326
  Serious: Yes (Congenital Anomaly, Other)
  Sender: FDA-Public Use
  Company Number: GXKR2014DE003584

PATIENT

DRUGS (5)
  1. SPIROBETA [Suspect]
     Active Substance: SPIRONOLACTONE
     Indication: HEART VALVE REPLACEMENT
     Dosage: 50 [MG/D ] 0.-9. GW
     Route: 064
  2. ASPIRIN. [Concomitant]
     Active Substance: ASPIRIN
     Indication: HEART VALVE REPLACEMENT
     Dosage: 100 [MG/D ]
     Route: 064
     Dates: start: 20130403, end: 20140117
  3. MIRTAZAPINE. [Suspect]
     Active Substance: MIRTAZAPINE
     Indication: DEPRESSION
     Dosage: UKN, 0.-9. GW
     Route: 064
  4. TORASEMIDE [Suspect]
     Active Substance: TORSEMIDE
     Indication: HEART VALVE REPLACEMENT
     Dosage: 10 [MG/D ], 0.-9. GW
     Route: 064
  5. METHADONE [Suspect]
     Active Substance: METHADONE HYDROCHLORIDE
     Indication: DRUG WITHDRAWAL MAINTENANCE THERAPY
     Dosage: 35 [ MG/D ], 0.-41.2 GW
     Route: 064
     Dates: start: 20130403, end: 20140117

REACTIONS (6)
  - Patent ductus arteriosus [Recovering/Resolving]
  - Atrial septal defect [Unknown]
  - Small for dates baby [Unknown]
  - Neonatal respiratory distress syndrome [Recovered/Resolved]
  - Coarctation of the aorta [Recovering/Resolving]
  - Drug withdrawal syndrome neonatal [Recovered/Resolved]

NARRATIVE: CASE EVENT DATE: 20140117
